FAERS Safety Report 4686303-4 (Version None)
Quarter: 2005Q2

REPORT INFORMATION
  Report Type: 
  Country: None (occurrence: None)
  Receive Date: 20050606
  Receipt Date: 20050523
  Transmission Date: 20051028
  Serious: Yes (Other)
  Sender: FDA-Public Use
  Company Number: 2005079494

PATIENT
  Age: 26 Year
  Sex: Female
  Weight: 70 kg

DRUGS (5)
  1. DEPO-PROVERA [Suspect]
     Indication: MENSTRUATION IRREGULAR
     Dosage: SEE IMAGE
     Route: 030
     Dates: start: 19841001, end: 19841001
  2. DEPO-PROVERA [Suspect]
     Indication: MENSTRUATION IRREGULAR
     Dosage: SEE IMAGE
     Route: 030
     Dates: start: 19911128, end: 19911128
  3. EPILIM (VALPROATE SODIUM) [Suspect]
     Indication: EPILEPSY
     Dosage: 1.2 GRAM (1.2 GRAM, DAILY),
     Dates: start: 19810101, end: 19910131
  4. TEGRETOL [Suspect]
     Indication: EPILEPSY
     Dosage: 800 MG (800 MG, DAILY),
     Dates: start: 19820101, end: 19910131
  5. MELLERIL                 (THIORIDAZINE HYDROCHLORIDE) [Suspect]
     Indication: ILL-DEFINED DISORDER
     Dosage: 60 MG (60 MG, DAILY),
     Dates: start: 19870101, end: 19910131

REACTIONS (2)
  - HEPATIC ADENOMA [None]
  - URINARY TRACT INFECTION [None]
